FAERS Safety Report 21605607 (Version 1)
Quarter: 2022Q4

REPORT INFORMATION
  Report Type: Report from Study
  Country: US (occurrence: US)
  Receive Date: 20221116
  Receipt Date: 20221116
  Transmission Date: 20230113
  Serious: No
  Sender: FDA-Public Use
  Company Number: US-ABBVIE-4167788

PATIENT
  Sex: Male

DRUGS (2)
  1. RINVOQ [Suspect]
     Active Substance: UPADACITINIB
     Indication: Product used for unknown indication
     Route: 048
  2. COVID-19 vaccine (COVID-19 vaccine) [Concomitant]
     Indication: COVID-19 immunisation
     Dosage: VACCINE
     Route: 030

REACTIONS (3)
  - Inflammation [Unknown]
  - Skin exfoliation [Unknown]
  - Excessive skin [Unknown]
